FAERS Safety Report 8057405-X (Version None)
Quarter: 2012Q1

REPORT INFORMATION
  Report Type: 
  Country: None (occurrence: None)
  Receive Date: 20120119
  Receipt Date: 20120109
  Transmission Date: 20120608
  Serious: Yes (Other)
  Sender: FDA-Public Use
  Company Number: US-RB-036289-12

PATIENT
  Sex: Female

DRUGS (2)
  1. SUBOXONE [Suspect]
     Indication: DRUG DEPENDENCE
     Route: 060
     Dates: end: 20110101
  2. BUPRENORPHINE [Suspect]
     Indication: DRUG DEPENDENCE
     Route: 060
     Dates: start: 20110101, end: 20110101

REACTIONS (4)
  - VOMITING [None]
  - ABORTION SPONTANEOUS [None]
  - MATERNAL EXPOSURE DURING PREGNANCY [None]
  - NAUSEA [None]
